FAERS Safety Report 4446914-8 (Version None)
Quarter: 2004Q3

REPORT INFORMATION
  Report Type: 
  Country: None (occurrence: None)
  Receive Date: 20040908
  Receipt Date: 20040820
  Transmission Date: 20050211
  Serious: Yes (Other)
  Sender: FDA-Public Use
  Company Number: DSA_24871_2004

PATIENT
  Age: 57 Year
  Sex: Male

DRUGS (11)
  1. DILZEM ^ELAN^ [Suspect]
     Dosage: 360 MG Q DAY PO
     Route: 048
  2. RAPAMUNE [Suspect]
     Indication: HEART TRANSPLANT
     Dosage: 1.5 MG Q DAY PO A FEW MONTHS
     Route: 048
  3. PRAVASTATIN SODIUM [Concomitant]
  4. IMUREK [Concomitant]
  5. ASPIRIN [Concomitant]
  6. GLUCOPHAGE [Concomitant]
  7. ACCUPRO [Concomitant]
  8. ACTONEL [Concomitant]
  9. NOCTAMID [Concomitant]
  10. ISOPHANE [Concomitant]
  11. ACTRAPD HUMAN [Concomitant]

REACTIONS (2)
  - DRUG INTERACTION [None]
  - IMMUNOSUPPRESSANT DRUG LEVEL INCREASED [None]
